FAERS Safety Report 6160330-2 (Version None)
Quarter: 2009Q2

REPORT INFORMATION
  Report Type: 
  Country: None (occurrence: None)
  Receive Date: 20090415
  Receipt Date: 20090415
  Transmission Date: 20091009
  Serious: Yes (Other)
  Sender: FDA-Public Use
  Company Number: None

PATIENT
  Sex: Male

DRUGS (2)
  1. PEG-INTRON [Suspect]
     Indication: HEPATITIS C
     Dosage: 120 MCG/0.5ML WEEKLY SQ
     Route: 058
     Dates: start: 20090325, end: 20090422
  2. RIBAVIRIN [Suspect]
     Indication: HEPATITIS C
     Dosage: 200 MG 2 PO AM/ 3 PO PM PO
     Route: 048
     Dates: start: 20090325, end: 20090422

REACTIONS (3)
  - BLOOD BILIRUBIN INCREASED [None]
  - CONSTIPATION [None]
  - EAR INFECTION [None]
